FAERS Safety Report 10251223 (Version 1)
Quarter: 2014Q2

REPORT INFORMATION
  Report Type: Report from Study
  Country: KR (occurrence: KR)
  Receive Date: 20140620
  Receipt Date: 20140620
  Transmission Date: 20141212
  Serious: Yes (Other)
  Sender: FDA-Public Use
  Company Number: KR-ABBVIE-14K-090-1248193-00

PATIENT
  Age: 52 Year
  Sex: Male

DRUGS (7)
  1. KALETRA 200/50 [Suspect]
     Indication: HIV INFECTION
     Route: 048
     Dates: start: 20140306
  2. HERBAL NOS [Suspect]
     Indication: PRODUCT USED FOR UNKNOWN INDICATION
  3. TDF/FTC [Concomitant]
     Indication: HIV INFECTION
     Dates: start: 20140220, end: 20140305
  4. TDF/FTC [Concomitant]
     Route: 048
     Dates: start: 20140306
  5. ETRAVIL [Concomitant]
     Indication: POST HERPETIC NEURALGIA
     Route: 048
     Dates: start: 20140220
  6. ULTRACET [Concomitant]
     Indication: POST HERPETIC NEURALGIA
     Route: 048
     Dates: start: 20140220
  7. NEURONTIN [Concomitant]
     Indication: POST HERPETIC NEURALGIA
     Route: 048
     Dates: start: 20140220

REACTIONS (2)
  - Hepatitis [Recovered/Resolved]
  - Diarrhoea [Not Recovered/Not Resolved]
